FAERS Safety Report 19614304 (Version 1)
Quarter: 2021Q3

REPORT INFORMATION
  Report Type: Spontaneous
  Country: JP (occurrence: JP)
  Receive Date: 20210727
  Receipt Date: 20210727
  Transmission Date: 20211014
  Serious: Yes (Hospitalization)
  Sender: FDA-Public Use
  Company Number: JP-COLLEGIUM PHARMACEUTICAL, INC.-2021CGM00898

PATIENT
  Sex: Male

DRUGS (1)
  1. TAPENTADOL [Suspect]
     Active Substance: TAPENTADOL
     Indication: CANCER PAIN
     Dosage: 300 MG, 2X/DAY
     Route: 048

REACTIONS (3)
  - Overdose [Unknown]
  - Off label use [Unknown]
  - Adverse event [Unknown]
